FAERS Safety Report 4809835-4 (Version None)
Quarter: 2005Q4

REPORT INFORMATION
  Report Type: 
  Country: None (occurrence: None)
  Receive Date: 20051026
  Receipt Date: 20051017
  Transmission Date: 20060501
  Serious: Yes (Hospitalization, Other)
  Sender: FDA-Public Use
  Company Number: US-JNJFOC-20051003640

PATIENT
  Age: 70 Year
  Sex: Female
  Weight: 90.72 kg

DRUGS (12)
  1. REMICADE [Suspect]
     Route: 042
  2. REMICADE [Suspect]
     Route: 042
  3. LASIX [Concomitant]
  4. POTASSIUM CHLORIDE [Concomitant]
  5. ASPIRIN [Concomitant]
  6. IRON [Concomitant]
  7. ALTACE [Concomitant]
  8. FOLIC ACID [Concomitant]
  9. METHOTREXATE [Concomitant]
  10. LIPITOR [Concomitant]
  11. ALBUTEROL [Concomitant]
  12. COREG [Concomitant]

REACTIONS (2)
  - CARDIAC OPERATION [None]
  - DIALYSIS [None]
